FAERS Safety Report 6165518-2 (Version None)
Quarter: 2009Q2

REPORT INFORMATION
  Report Type: 
  Country: None (occurrence: None)
  Receive Date: 20090421
  Receipt Date: 20090421
  Transmission Date: 20091009
  Serious: No
  Sender: FDA-Public Use
  Company Number: None

PATIENT

DRUGS (1)
  1. EFFEXOR [Suspect]
     Dates: end: 20090414

REACTIONS (7)
  - ANXIETY [None]
  - HYPERTENSION [None]
  - MALAISE [None]
  - NAUSEA [None]
  - PHYSICAL PRODUCT LABEL ISSUE [None]
  - PRODUCT COLOUR ISSUE [None]
  - PRODUCT PACKAGING QUANTITY ISSUE [None]
